FAERS Safety Report 18383669 (Version 1)
Quarter: 2020Q4

REPORT INFORMATION
  Report Type: Spontaneous
  Country: US (occurrence: US)
  Receive Date: 20201014
  Receipt Date: 20201014
  Transmission Date: 20210114
  Serious: Yes (Hospitalization)
  Sender: FDA-Public Use
  Company Number: US-GILEAD-2020-0498842

PATIENT
  Age: 25 Year
  Sex: Female
  Weight: 95.3 kg

DRUGS (5)
  1. DEXAMETHASONE. [Concomitant]
     Active Substance: DEXAMETHASONE
  2. LIDOCAINE. [Concomitant]
     Active Substance: LIDOCAINE
  3. ENOXAPARIN [Concomitant]
     Active Substance: ENOXAPARIN
  4. GUAIFENESIN. [Concomitant]
     Active Substance: GUAIFENESIN
  5. REMDESIVIR. [Suspect]
     Active Substance: REMDESIVIR
     Indication: COVID-19
     Dosage: 100 MG, QD
     Route: 042
     Dates: start: 20201007, end: 20201009

REACTIONS (1)
  - Liver function test increased [Unknown]

NARRATIVE: CASE EVENT DATE: 20201009
